FAERS Safety Report 12988477 (Version 2)
Quarter: 2016Q4

REPORT INFORMATION
  Report Type: Spontaneous
  Country: FR (occurrence: FR)
  Receive Date: 20161130
  Receipt Date: 20161223
  Transmission Date: 20170207
  Serious: Yes (Other)
  Sender: FDA-Public Use
  Company Number: FR-JNJFOC-20161130076

PATIENT
  Age: 17 Year
  Sex: Female
  Weight: 50 kg

DRUGS (10)
  1. TOPALGIC [Suspect]
     Active Substance: TRAMADOL
     Indication: ANALGESIC THERAPY
     Route: 048
     Dates: start: 201609, end: 201609
  2. TOPALGIC [Suspect]
     Active Substance: TRAMADOL
     Indication: ARTHRITIS
     Route: 048
     Dates: start: 201609, end: 201609
  3. CEBUTID [Concomitant]
     Active Substance: FLURBIPROFEN
     Indication: SPONDYLITIS
     Route: 048
     Dates: start: 20160827
  4. OMEPRAZOLE. [Concomitant]
     Active Substance: OMEPRAZOLE
     Indication: PROPHYLAXIS AGAINST GASTROINTESTINAL ULCER
     Route: 048
     Dates: start: 20160827
  5. ENBREL [Concomitant]
     Active Substance: ETANERCEPT
     Indication: SPONDYLITIS
     Route: 065
     Dates: start: 20161021
  6. TOPALGIC [Suspect]
     Active Substance: TRAMADOL
     Indication: ANALGESIC THERAPY
     Route: 048
     Dates: start: 201608, end: 201608
  7. TOPALGIC [Suspect]
     Active Substance: TRAMADOL
     Indication: ARTHRITIS
     Route: 048
     Dates: start: 201608, end: 201608
  8. TOPALGIC [Suspect]
     Active Substance: TRAMADOL
     Indication: ARTHRITIS
     Dosage: 50 MG IN THE MORNING AND 50 MG IN THE EVENING
     Route: 048
     Dates: start: 201610
  9. OPTIMIZETTE [Concomitant]
     Active Substance: DESOGESTREL
     Indication: CONTRACEPTION
     Route: 048
     Dates: start: 20160823
  10. TOPALGIC [Suspect]
     Active Substance: TRAMADOL
     Indication: ANALGESIC THERAPY
     Dosage: 50 MG IN THE MORNING AND 50 MG IN THE EVENING
     Route: 048
     Dates: start: 201610

REACTIONS (5)
  - Intentional product use issue [Not Recovered/Not Resolved]
  - Abdominal pain upper [Not Recovered/Not Resolved]
  - Withdrawal syndrome [Recovering/Resolving]
  - Drug dependence [Recovering/Resolving]
  - Cold sweat [Not Recovered/Not Resolved]

NARRATIVE: CASE EVENT DATE: 201610
